FAERS Safety Report 7450459-0 (Version None)
Quarter: 2011Q2

REPORT INFORMATION
  Report Type: 
  Country: None (occurrence: None)
  Receive Date: 20110502
  Receipt Date: 20110420
  Transmission Date: 20111010
  Serious: Yes (Other)
  Sender: FDA-Public Use
  Company Number: PHHY2011AR34528

PATIENT
  Sex: Female

DRUGS (1)
  1. EXFORGE [Suspect]
     Indication: HYPERTENSION
     Dosage: VALSARTAN 320MG AND AMLODIPINE 05MG (ONE TABLET DAILY)
     Route: 048
     Dates: start: 20110328, end: 20110402

REACTIONS (3)
  - FALL [None]
  - HYPOTENSION [None]
  - DIZZINESS [None]
